FAERS Safety Report 8446476-4 (Version None)
Quarter: 2012Q2

REPORT INFORMATION
  Report Type: 
  Country: None (occurrence: None)
  Receive Date: 20120618
  Receipt Date: 20120410
  Transmission Date: 20120825
  Serious: No
  Sender: FDA-Public Use
  Company Number: US-TEVA-332761USA

PATIENT
  Sex: Male
  Weight: 93.07 kg

DRUGS (6)
  1. METHADONE HCL [Concomitant]
     Dosage: 30 MILLIGRAM;
     Route: 048
  2. OXYCODONE HCL [Concomitant]
     Route: 048
     Dates: start: 20020101
  3. ACTIQ [Suspect]
     Indication: BREAKTHROUGH PAIN
     Route: 002
     Dates: start: 20010101, end: 20120406
  4. HYDROMORPHONE HCL [Concomitant]
     Indication: PAIN
     Route: 048
     Dates: start: 20020101
  5. MORPHINE [Concomitant]
     Indication: PAIN
     Route: 048
     Dates: start: 20020101
  6. METHYLPHENIDATE HCL [Concomitant]
     Indication: ATTENTION DEFICIT/HYPERACTIVITY DISORDER
     Dosage: 54 MILLIGRAM;
     Route: 048

REACTIONS (5)
  - PAIN [None]
  - CLUSTER HEADACHE [None]
  - MUSCLE SPASMS [None]
  - MIGRAINE [None]
  - OFF LABEL USE [None]
